FAERS Safety Report 19995912 (Version 1)
Quarter: 2021Q4

REPORT INFORMATION
  Report Type: Report from Study
  Country: IT (occurrence: IT)
  Receive Date: 20211026
  Receipt Date: 20211026
  Transmission Date: 20220303
  Serious: Yes (Other)
  Sender: FDA-Public Use
  Company Number: IT-HRAPH01-2021001326

PATIENT
  Sex: Female
  Weight: 47 kg

DRUGS (2)
  1. ULIPRISTAL ACETATE [Suspect]
     Active Substance: ULIPRISTAL ACETATE
     Route: 048
     Dates: start: 20201228, end: 20201228
  2. Eutirox 75 mg [Concomitant]
     Dosage: 1 DOSAGE FORM OF 75 ?G (ERRONEOUSLY REPORTED AS 75 MG)

REACTIONS (2)
  - Complication of pregnancy [Recovered/Resolved]
  - Unintended pregnancy [Recovered/Resolved]
